FAERS Safety Report 13034719 (Version 1)
Quarter: 2016Q4

REPORT INFORMATION
  Report Type: Spontaneous
  Country: GB (occurrence: GB)
  Receive Date: 20161216
  Receipt Date: 20161216
  Transmission Date: 20170207
  Serious: Yes (Hospitalization)
  Sender: FDA-Public Use
  Company Number: GB-GLAXOSMITHKLINE-GB2016GSK186798

PATIENT
  Age: 36 Year
  Sex: Female

DRUGS (6)
  1. FLUCLOXACILLIN [Suspect]
     Active Substance: FLUCLOXACILLIN
     Indication: PSORIASIS
  2. TERBINAFINE. [Suspect]
     Active Substance: TERBINAFINE
  3. ACITRETIN. [Suspect]
     Active Substance: ACITRETIN
  4. FLUCLOXACILLIN [Suspect]
     Active Substance: FLUCLOXACILLIN
     Indication: INTERTRIGO
  5. METRONIDAZOLE. [Suspect]
     Active Substance: METRONIDAZOLE
  6. CICLOSPORIN [Suspect]
     Active Substance: CYCLOSPORINE

REACTIONS (9)
  - Erythema [Unknown]
  - Rash pustular [Unknown]
  - Tachycardia [Unknown]
  - Acute generalised exanthematous pustulosis [Unknown]
  - Pyrexia [Unknown]
  - Acanthosis [Unknown]
  - Drug ineffective [Unknown]
  - Nikolsky^s sign [Unknown]
  - Face oedema [Unknown]
